FAERS Safety Report 4656554-3 (Version None)
Quarter: 2005Q2

REPORT INFORMATION
  Report Type: 
  Country: None (occurrence: None)
  Receive Date: 20050505
  Receipt Date: 20050418
  Transmission Date: 20051028
  Serious: Yes (Other)
  Sender: FDA-Public Use
  Company Number: JP_050406373

PATIENT
  Age: 56 Year
  Sex: Male

DRUGS (3)
  1. GEMZAR [Suspect]
     Indication: PANCREATIC CARCINOMA
  2. DECADRON SRC [Concomitant]
  3. SEROTONE (AZASETRON HYDROCHLORIDE) [Concomitant]

REACTIONS (2)
  - HYPERTHERMIA [None]
  - URTICARIA GENERALISED [None]
